FAERS Safety Report 4759401-4 (Version None)
Quarter: 2005Q3

REPORT INFORMATION
  Report Type: 
  Country: None (occurrence: None)
  Receive Date: 20050901
  Receipt Date: 20050826
  Transmission Date: 20060218
  Serious: Yes (Hospitalization)
  Sender: FDA-Public Use
  Company Number: CH-ABBOTT-05P-151-0309502-00

PATIENT
  Age: 72 Year
  Sex: Male

DRUGS (10)
  1. BIPERIDEN HYDROCHLORIDE TAB [Suspect]
     Indication: EXTRAPYRAMIDAL DISORDER
     Dates: end: 20050310
  2. GLIBORNURIDE [Suspect]
     Indication: DIABETES MELLITUS NON-INSULIN-DEPENDENT
     Route: 048
     Dates: end: 20050310
  3. RISPERIDONE [Suspect]
     Indication: SCHIZOAFFECTIVE DISORDER
     Route: 048
     Dates: end: 20050310
  4. FUROSEMIDE [Suspect]
     Indication: HYPERTENSION
     Route: 048
     Dates: end: 20050310
  5. HYZAAR [Suspect]
     Indication: HYPERTENSION
     Route: 048
     Dates: end: 20050310
  6. VALPROIC ACID [Concomitant]
     Indication: DRUG USE FOR UNKNOWN INDICATION
     Dates: end: 20050101
  7. VALPROIC ACID [Concomitant]
  8. LORAZEPAM [Concomitant]
     Indication: DRUG USE FOR UNKNOWN INDICATION
  9. ASPIRIN [Concomitant]
     Indication: DRUG USE FOR UNKNOWN INDICATION
  10. METFORMIN HCL [Concomitant]
     Indication: DRUG USE FOR UNKNOWN INDICATION

REACTIONS (10)
  - ABASIA [None]
  - CHILLS [None]
  - EXTRAPYRAMIDAL DISORDER [None]
  - FATIGUE [None]
  - GENERAL PHYSICAL HEALTH DETERIORATION [None]
  - HYPOTENSION [None]
  - NEUROLEPTIC MALIGNANT SYNDROME [None]
  - PYREXIA [None]
  - TACHYCARDIA [None]
  - URINARY INCONTINENCE [None]
